FAERS Safety Report 4630835-1 (Version None)
Quarter: 2005Q1

REPORT INFORMATION
  Report Type: 
  Country: None (occurrence: None)
  Receive Date: 20050331
  Receipt Date: 20050331
  Transmission Date: 20050727
  Serious: No
  Sender: FDA-Public Use
  Company Number: None

PATIENT
  Sex: Male
  Weight: 67 kg

DRUGS (1)
  1. TRANSPLANT TISSUE [Suspect]
     Dates: start: 20040507

REACTIONS (11)
  - ANAEMIA [None]
  - DIARRHOEA [None]
  - DRUG LEVEL INCREASED [None]
  - ENDOSCOPY LARGE BOWEL ABNORMAL [None]
  - GASTROINTESTINAL TRACT MUCOSAL DISCOLOURATION [None]
  - GRAFT VERSUS HOST DISEASE [None]
  - HYPERTENSION [None]
  - INFECTION [None]
  - NAUSEA [None]
  - PSYCHOTIC DISORDER [None]
  - PYREXIA [None]
